FAERS Safety Report 6560727-2 (Version None)
Quarter: 2010Q1

REPORT INFORMATION
  Report Type: 
  Country: None (occurrence: None)
  Receive Date: 20100129
  Receipt Date: 20050330
  Transmission Date: 20100710
  Serious: No
  Sender: FDA-Public Use
  Company Number: US-ALLERGAN-200502863

PATIENT
  Age: 56 Year
  Sex: Female

DRUGS (1)
  1. BOTOX COSMETIC [Suspect]
     Indication: SKIN WRINKLING
     Dosage: INJECTED INTO THE FROWN LINES
     Route: 030
     Dates: start: 20050323

REACTIONS (5)
  - CHILLS [None]
  - DECREASED APPETITE [None]
  - EYELID PTOSIS [None]
  - INFLUENZA [None]
  - NAUSEA [None]
